FAERS Safety Report 24362960 (Version 6)
Quarter: 2025Q2

REPORT INFORMATION
  Report Type: Spontaneous
  Country: US (occurrence: US)
  Receive Date: 20240925
  Receipt Date: 20250613
  Transmission Date: 20250716
  Serious: Yes (Other)
  Sender: PFIZER
  Company Number: US-PFIZER INC-PV202400035794

PATIENT
  Age: 83 Year
  Sex: Female

DRUGS (1)
  1. IBRANCE [Suspect]
     Active Substance: PALBOCICLIB
     Indication: Lymphoma
     Route: 048
     Dates: start: 20240119

REACTIONS (4)
  - Blindness [Unknown]
  - Visual impairment [Unknown]
  - Off label use [Unknown]
  - Drug effective for unapproved indication [Unknown]
